FAERS Safety Report 18413967 (Version 1)
Quarter: 2020Q4

REPORT INFORMATION
  Report Type: Spontaneous
  Country: IT (occurrence: IT)
  Receive Date: 20201022
  Receipt Date: 20201022
  Transmission Date: 20210114
  Serious: Yes (Death, Hospitalization, Other)
  Sender: FDA-Public Use
  Company Number: PHHY2014IT011912

PATIENT
  Age: 65 Year
  Sex: Female

DRUGS (6)
  1. FLUDARABINE PHOSPHATE. [Suspect]
     Active Substance: FLUDARABINE PHOSPHATE
     Indication: NON-HODGKIN^S LYMPHOMA
  2. CYCLOPHOSPHAMIDE. [Suspect]
     Active Substance: CYCLOPHOSPHAMIDE
     Indication: NON-HODGKIN^S LYMPHOMA
  3. RITUXIMAB. [Suspect]
     Active Substance: RITUXIMAB
     Indication: NON-HODGKIN^S LYMPHOMA
  4. RITUXIMAB. [Suspect]
     Active Substance: RITUXIMAB
     Indication: B-CELL LYMPHOMA
     Dosage: UNK, SIX CYCLES
     Route: 065
  5. FLUDARABINE PHOSPHATE. [Suspect]
     Active Substance: FLUDARABINE PHOSPHATE
     Indication: B-CELL LYMPHOMA
     Dosage: UNK, SIX CYCLES
     Route: 065
  6. CYCLOPHOSPHAMIDE. [Suspect]
     Active Substance: CYCLOPHOSPHAMIDE
     Indication: B-CELL LYMPHOMA
     Dosage: UNK, SIX CYCLES
     Route: 065

REACTIONS (15)
  - Balance disorder [Fatal]
  - Gliosis [Fatal]
  - Clostridium difficile colitis [Unknown]
  - Neutropenia [Recovered/Resolved]
  - Pyrexia [Recovered/Resolved]
  - Erysipelas [Unknown]
  - Diarrhoea [Unknown]
  - Pneumonia [Recovered/Resolved]
  - Progressive multifocal leukoencephalopathy [Fatal]
  - Ophthalmic herpes zoster [Unknown]
  - Neurological symptom [Unknown]
  - Optic atrophy [Fatal]
  - Hypoacusis [Fatal]
  - Herpes ophthalmic [Unknown]
  - Clostridium difficile infection [Unknown]
